FAERS Safety Report 8389749-6 (Version None)
Quarter: 2012Q2

REPORT INFORMATION
  Report Type: 
  Country: None (occurrence: None)
  Receive Date: 20120524
  Receipt Date: 20120524
  Transmission Date: 20120825
  Serious: Yes (Hospitalization)
  Sender: FDA-Public Use
  Company Number: None

PATIENT
  Sex: Female

DRUGS (1)
  1. FORTEO [Suspect]
     Dosage: 20 MCG DAILY SQ
     Route: 058
     Dates: start: 20120101, end: 20120301

REACTIONS (5)
  - FALL [None]
  - ARTHRALGIA [None]
  - FATIGUE [None]
  - CONFUSIONAL STATE [None]
  - PAIN IN EXTREMITY [None]
